FAERS Safety Report 4629037-4 (Version None)
Quarter: 2005Q2

REPORT INFORMATION
  Report Type: 
  Country: None (occurrence: None)
  Receive Date: 20050407
  Receipt Date: 20050331
  Transmission Date: 20051028
  Serious: Yes (Hospitalization)
  Sender: FDA-Public Use
  Company Number: PHBS2005TW04573

PATIENT
  Age: 32 Year
  Sex: Female

DRUGS (2)
  1. BROMOCRIPTINE MESYLATE [Suspect]
     Indication: PROLACTINOMA
     Route: 065
  2. BROMOCRIPTINE MESYLATE [Suspect]
     Dosage: 2.5 MG, BID
     Route: 065
     Dates: start: 19990101

REACTIONS (7)
  - DRUG EXPOSURE DURING PREGNANCY [None]
  - EMPTY SELLA SYNDROME [None]
  - HEADACHE [None]
  - NORMAL NEWBORN [None]
  - NUCLEAR MAGNETIC RESONANCE IMAGING ABNORMAL [None]
  - PREGNANCY [None]
  - VISION BLURRED [None]
